FAERS Safety Report 16614322 (Version 1)
Quarter: 2019Q3

REPORT INFORMATION
  Report Type: Spontaneous
  Country: SI (occurrence: SI)
  Receive Date: 20190723
  Receipt Date: 20190723
  Transmission Date: 20191004
  Serious: Yes (Other)
  Sender: FDA-Public Use
  Company Number: SI-ROCHE-2359330

PATIENT
  Age: 38 Year
  Sex: Female

DRUGS (7)
  1. CLIMARA [Suspect]
     Active Substance: ESTRADIOL
     Indication: PREMATURE MENOPAUSE
     Route: 061
  2. BUSULFAN. [Suspect]
     Active Substance: BUSULFAN
     Indication: BONE MARROW CONDITIONING REGIMEN
     Route: 065
  3. SIROLIMUS. [Interacting]
     Active Substance: SIROLIMUS
     Indication: CHRONIC GRAFT VERSUS HOST DISEASE
     Route: 065
     Dates: end: 201307
  4. AZACITIDINE. [Suspect]
     Active Substance: AZACITIDINE
     Indication: BONE MARROW CONDITIONING REGIMEN
     Route: 065
  5. CYCLOPHOSPHAMIDE. [Suspect]
     Active Substance: CYCLOPHOSPHAMIDE
     Indication: BONE MARROW CONDITIONING REGIMEN
     Route: 065
  6. UTROGESTAN [Concomitant]
     Active Substance: PROGESTERONE
     Indication: PREMATURE MENOPAUSE
     Dosage: 200 MILLIGRAM DAILY;
     Route: 067
  7. MYCOPHENOLATE MOFETIL. [Suspect]
     Active Substance: MYCOPHENOLATE MOFETIL
     Indication: CHRONIC GRAFT VERSUS HOST DISEASE
     Route: 065
     Dates: end: 201412

REACTIONS (5)
  - Premature menopause [Recovered/Resolved]
  - Menopausal symptoms [Recovered/Resolved]
  - Hepatic enzyme increased [Recovered/Resolved]
  - Drug hypersensitivity [Unknown]
  - Drug interaction [Unknown]
